FAERS Safety Report 7669248-7 (Version None)
Quarter: 2011Q3

REPORT INFORMATION
  Report Type: 
  Country: None (occurrence: None)
  Receive Date: 20110808
  Receipt Date: 20110802
  Transmission Date: 20111222
  Serious: Yes (Other)
  Sender: FDA-Public Use
  Company Number: PHHY2010CA38139

PATIENT
  Sex: Female

DRUGS (4)
  1. ZOPLICONE [Concomitant]
     Dosage: 7.5 MG, TID
  2. ZOLEDRONOC ACID [Suspect]
     Indication: OSTEOPOROSIS
     Dosage: 5 MG, ONCE A YEAR
     Route: 042
     Dates: start: 20090618
  3. LOSEC                                   /CAN/ [Concomitant]
     Dosage: 20 MG, QD
  4. COVERSYL                                /BEL/ [Concomitant]
     Dosage: 4 MG, QD

REACTIONS (7)
  - BENIGN LYMPH NODE NEOPLASM [None]
  - GASTROOESOPHAGEAL REFLUX DISEASE [None]
  - MYALGIA [None]
  - NECK MASS [None]
  - BONE PAIN [None]
  - PAIN IN EXTREMITY [None]
  - SCIATICA [None]
